FAERS Safety Report 25140445 (Version 2)
Quarter: 2025Q2

REPORT INFORMATION
  Report Type: Spontaneous
  Country: US (occurrence: US)
  Receive Date: 20250331
  Receipt Date: 20250407
  Transmission Date: 20250716
  Serious: Yes (Other)
  Sender: TORRENT
  Company Number: US-TORRENT-00014277

PATIENT
  Age: 35 Year
  Sex: Female

DRUGS (1)
  1. LEVETIRACETAM [Suspect]
     Active Substance: LEVETIRACETAM
     Indication: Partial seizures with secondary generalisation
     Route: 065

REACTIONS (3)
  - Major depression [Recovered/Resolved]
  - Frustration tolerance decreased [Recovered/Resolved]
  - Suicidal ideation [Recovered/Resolved]
